FAERS Safety Report 4915071-3 (Version None)
Quarter: 2006Q1

REPORT INFORMATION
  Report Type: 
  Country: None (occurrence: None)
  Receive Date: 20060215
  Receipt Date: 20060215
  Transmission Date: 20060701
  Serious: Yes (Other)
  Sender: FDA-Public Use
  Company Number: None

PATIENT
  Age: 30 Year
  Sex: Female
  Weight: 76.6579 kg

DRUGS (1)
  1. CITALOPRAM [Suspect]
     Indication: DYSTHYMIC DISORDER
     Dosage: 20 MG DAILY PO
     Route: 048
     Dates: start: 20050316, end: 20050926

REACTIONS (8)
  - ARTHRALGIA [None]
  - EXERCISE LACK OF [None]
  - FATIGUE [None]
  - GRIP STRENGTH DECREASED [None]
  - JOINT SWELLING [None]
  - MUSCULAR WEAKNESS [None]
  - OEDEMA PERIPHERAL [None]
  - PAIN IN EXTREMITY [None]
